FAERS Safety Report 25750293 (Version 2)
Quarter: 2025Q3

REPORT INFORMATION
  Report Type: Spontaneous
  Country: US (occurrence: US)
  Receive Date: 20250902
  Receipt Date: 20250926
  Transmission Date: 20251020
  Serious: Yes (Hospitalization)
  Sender: MYLAN
  Company Number: US-MYLANLABS-2025M1073637

PATIENT
  Age: 89 Year
  Sex: Female

DRUGS (4)
  1. PREDNISONE [Suspect]
     Active Substance: PREDNISONE
     Indication: Pain
     Dosage: 2.5 MILLIGRAM, BID, LOW DOSE
  2. PREDNISONE [Suspect]
     Active Substance: PREDNISONE
     Indication: Intervertebral disc degeneration
     Dosage: 2.5 MILLIGRAM, BID, LOW DOSE
     Route: 065
  3. PREDNISONE [Suspect]
     Active Substance: PREDNISONE
     Dosage: 2.5 MILLIGRAM, BID, LOW DOSE
     Route: 065
  4. PREDNISONE [Suspect]
     Active Substance: PREDNISONE
     Dosage: 2.5 MILLIGRAM, BID, LOW DOSE

REACTIONS (3)
  - Herpes zoster disseminated [Recovering/Resolving]
  - Encephalitis herpes [Recovering/Resolving]
  - Immunosuppression [Recovering/Resolving]
